FAERS Safety Report 24641711 (Version 1)
Quarter: 2024Q4

REPORT INFORMATION
  Report Type: Spontaneous
  Country: US (occurrence: None)
  Receive Date: 20241120
  Receipt Date: 20241120
  Transmission Date: 20250115
  Serious: Yes (Hospitalization)
  Sender: Public
  Company Number: None

PATIENT
  Age: 65 Year
  Sex: Female
  Weight: 80.9 kg

DRUGS (2)
  1. CISPLATIN [Suspect]
     Active Substance: CISPLATIN
     Dates: end: 20241106
  2. ALIMTA [Suspect]
     Active Substance: PEMETREXED DISODIUM
     Dates: end: 20241106

REACTIONS (2)
  - Abdominal pain lower [None]
  - Diverticulitis [None]

NARRATIVE: CASE EVENT DATE: 20241113
